FAERS Safety Report 9862372 (Version 2)
Quarter: 2014Q1

REPORT INFORMATION
  Report Type: Spontaneous
  Country: JP (occurrence: JP)
  Receive Date: 20140203
  Receipt Date: 20140227
  Transmission Date: 20141002
  Serious: Yes (Hospitalization)
  Sender: FDA-Public Use
  Company Number: JP-BAYER-2014-016489

PATIENT
  Age: 17 Year
  Sex: Female
  Weight: 50 kg

DRUGS (2)
  1. YAZ [Suspect]
     Indication: DYSMENORRHOEA
     Dosage: DAILY DOSE 1 DF
     Route: 048
     Dates: start: 20131128, end: 20140127
  2. ALLEGRA [Concomitant]
     Indication: RHINITIS
     Dosage: DAILY DOSE 120 MG
     Route: 048

REACTIONS (5)
  - Pain in extremity [Recovering/Resolving]
  - Muscular weakness [Recovering/Resolving]
  - Fibrin D dimer increased [Recovered/Resolved]
  - Vascular insufficiency [Recovering/Resolving]
  - Abasia [Recovering/Resolving]
